FAERS Safety Report 14545534 (Version 1)
Quarter: 2018Q1

REPORT INFORMATION
  Report Type: Spontaneous
  Country: US (occurrence: US)
  Receive Date: 20180219
  Receipt Date: 20180219
  Transmission Date: 20180509
  Serious: No
  Sender: FDA-Public Use
  Company Number: US-ELI_LILLY_AND_COMPANY-US201802005493

PATIENT
  Sex: Male

DRUGS (3)
  1. BASAGLAR [Suspect]
     Active Substance: INSULIN GLARGINE
     Dosage: UNK UNK, SINGLE (SLINDING SCALE ONCE A DAY UP TO 40 UNITS )
     Route: 058
  2. BASAGLAR [Suspect]
     Active Substance: INSULIN GLARGINE
     Indication: DIABETES MELLITUS
     Dosage: UNK UNK, SINGLE (SLINDING SCALE ONCE A DAY UP TO 40 UNITS )
     Route: 058
  3. HUMALOG [Concomitant]
     Active Substance: INSULIN LISPRO
     Indication: DIABETES MELLITUS
     Dosage: UNK UNK, UNKNOWN (SLIDING SCALE 5-30 UNITS)
     Route: 058

REACTIONS (4)
  - Abdominal discomfort [Recovering/Resolving]
  - Product storage error [Unknown]
  - Therapeutic response decreased [Recovering/Resolving]
  - Injection site discomfort [Recovering/Resolving]
